FAERS Safety Report 10086836 (Version 2)
Quarter: 2014Q2

REPORT INFORMATION
  Report Type: Spontaneous
  Country: DE (occurrence: DE)
  Receive Date: 20140418
  Receipt Date: 20140505
  Transmission Date: 20141212
  Serious: Yes (Disabling)
  Sender: FDA-Public Use
  Company Number: DE-GLAXOSMITHKLINE-D0083653A

PATIENT
  Age: 12 Year
  Sex: Female
  Weight: 48 kg

DRUGS (2)
  1. VIANI MITE [Suspect]
     Indication: ASTHMA
     Dosage: 150UG TWICE PER DAY
     Route: 048
  2. SALBUTAMOL [Concomitant]
     Indication: ASTHMA
     Dosage: 200UG AS REQUIRED
     Route: 055

REACTIONS (2)
  - Papilloedema [Not Recovered/Not Resolved]
  - Visual acuity reduced [Not Recovered/Not Resolved]
